FAERS Safety Report 5588386-6 (Version None)
Quarter: 2008Q1

REPORT INFORMATION
  Report Type: 
  Country: None (occurrence: None)
  Receive Date: 20080111
  Receipt Date: 20071101
  Transmission Date: 20080703
  Serious: No
  Sender: FDA-Public Use
  Company Number: A0691002A

PATIENT
  Age: 58 Year
  Sex: Female

DRUGS (4)
  1. TYKERB [Suspect]
     Indication: BREAST CANCER
     Dosage: 3TAB PER DAY
     Route: 048
     Dates: start: 20071006
  2. SUTENT [Concomitant]
  3. TAMOXIFEN [Concomitant]
  4. SODIUM PHENYLBUTYRATE [Concomitant]

REACTIONS (4)
  - DIARRHOEA [None]
  - MUSCLE SPASMS [None]
  - NAUSEA [None]
  - RASH [None]
